FAERS Safety Report 6781906-5 (Version None)
Quarter: 2010Q2

REPORT INFORMATION
  Report Type: 
  Country: None (occurrence: None)
  Receive Date: 20100618
  Receipt Date: 20100618
  Transmission Date: 20101027
  Serious: Yes (Death)
  Sender: FDA-Public Use
  Company Number: None

PATIENT
  Sex: Female
  Weight: 53.97 kg

DRUGS (1)
  1. MEMANTINE HCL [Suspect]
     Dosage: 920 MG

REACTIONS (2)
  - DISEASE PROGRESSION [None]
  - LUNG DISORDER [None]
